FAERS Safety Report 7111432-5 (Version None)
Quarter: 2010Q4

REPORT INFORMATION
  Report Type: 
  Country: None (occurrence: None)
  Receive Date: 20101118
  Receipt Date: 20100421
  Transmission Date: 20110411
  Serious: No
  Sender: FDA-Public Use
  Company Number: US-PFIZER INC-2010051274

PATIENT

DRUGS (1)
  1. ZYVOX [Suspect]
     Dosage: 600 MG, UNK

REACTIONS (1)
  - DYSPHAGIA [None]
